FAERS Safety Report 22049016 (Version 1)
Quarter: 2023Q1

REPORT INFORMATION
  Report Type: Spontaneous
  Country: US (occurrence: None)
  Receive Date: 20230228
  Receipt Date: 20230228
  Transmission Date: 20230417
  Serious: No
  Sender: FDA-Public Use
  Company Number: None

PATIENT
  Age: 75 Year
  Sex: Male
  Weight: 90.72 kg

DRUGS (31)
  1. LENALIDOMIDE [Suspect]
     Active Substance: LENALIDOMIDE
     Indication: Plasma cell myeloma
     Dosage: OTHER FREQUENCY : 21D PF 28 DAYS;?
     Route: 048
  2. ACYCLOVIR [Concomitant]
     Active Substance: ACYCLOVIR
  3. ALBUTEROL [Concomitant]
     Active Substance: ALBUTEROL
  4. BACTRIM DS [Concomitant]
     Active Substance: SULFAMETHOXAZOLE\TRIMETHOPRIM
  5. CALCITRIOL [Concomitant]
     Active Substance: CALCITRIOL
  6. CALCIUM CARBONATE [Concomitant]
     Active Substance: CALCIUM CARBONATE
  7. CELLCEPT [Concomitant]
     Active Substance: MYCOPHENOLATE MOFETIL
  8. CONSTULOSE [Concomitant]
     Active Substance: LACTULOSE
  9. DEXAMETHASONE [Concomitant]
     Active Substance: DEXAMETHASONE
  10. FAMOTIDINE [Concomitant]
     Active Substance: FAMOTIDINE
  11. FUROSEMIDE [Concomitant]
     Active Substance: FUROSEMIDE
  12. GABAPENTIN [Concomitant]
     Active Substance: GABAPENTIN
  13. INSULIN ASPART FLEX PEN [Concomitant]
  14. ALBUTEROL\IPRATROPIUM [Concomitant]
     Active Substance: ALBUTEROL\IPRATROPIUM
  15. LEVETIRACETAM [Concomitant]
     Active Substance: LEVETIRACETAM
  16. LIDOCAINE [Concomitant]
     Active Substance: LIDOCAINE
  17. MAGNESIUM CHLORIDE [Concomitant]
     Active Substance: MAGNESIUM CHLORIDE
  18. MIDODRINE [Concomitant]
     Active Substance: MIDODRINE
  19. VITAMINS [Concomitant]
     Active Substance: VITAMINS
  20. OLANZAPINE [Concomitant]
     Active Substance: OLANZAPINE
  21. OMEPRAZOLE [Concomitant]
     Active Substance: OMEPRAZOLE
  22. ONDANSETRON [Concomitant]
  23. OXYCODONE [Concomitant]
     Active Substance: OXYCODONE
  24. POTASSIUM CHLROIDE [Concomitant]
  25. PREDNISONE [Concomitant]
     Active Substance: PREDNISONE
  26. SILDENAFIL CITRATE [Concomitant]
     Active Substance: SILDENAFIL CITRATE
  27. SINGULAIR [Concomitant]
     Active Substance: MONTELUKAST SODIUM
  28. STIOLTO RESPIMAT [Concomitant]
     Active Substance: OLODATEROL HYDROCHLORIDE\TIOTROPIUM BROMIDE MONOHYDRATE
  29. TOUJEO MAX [Concomitant]
     Active Substance: INSULIN GLARGINE
  30. VICTOZA [Concomitant]
     Active Substance: LIRAGLUTIDE
  31. WARFARIN [Concomitant]
     Active Substance: WARFARIN

REACTIONS (3)
  - Tremor [None]
  - Fatigue [None]
  - Full blood count decreased [None]
